FAERS Safety Report 8102130-X (Version None)
Quarter: 2012Q1

REPORT INFORMATION
  Report Type: 
  Country: None (occurrence: None)
  Receive Date: 20120131
  Receipt Date: 20120125
  Transmission Date: 20120608
  Serious: Yes (Hospitalization)
  Sender: FDA-Public Use
  Company Number: PHHY2012GB006634

PATIENT
  Sex: Female
  Weight: 69 kg

DRUGS (11)
  1. ALENDRONIC ACID [Suspect]
     Indication: OSTEOPOROSIS
     Dosage: 70 MG, QW
     Route: 048
     Dates: start: 20120101
  2. ASPIRIN [Concomitant]
  3. DIPYRIDAMOLE [Concomitant]
  4. CARBOCISTEINE [Concomitant]
  5. TIOPRONIN [Concomitant]
  6. PROCHLORPEMAZINE [Concomitant]
  7. LEVOTHYROXINE SODIUM [Concomitant]
  8. SERETIDE [Concomitant]
  9. ADCAL-D3 [Concomitant]
  10. PREDNISOLONE [Concomitant]
     Indication: CHRONIC OBSTRUCTIVE PULMONARY DISEASE
  11. ENOXAPARIN [Concomitant]

REACTIONS (3)
  - OESOPHAGEAL ULCER HAEMORRHAGE [None]
  - PELVIC FRACTURE [None]
  - FALL [None]
